FAERS Safety Report 8543673-4 (Version None)
Quarter: 2012Q3

REPORT INFORMATION
  Report Type: 
  Country: None (occurrence: None)
  Receive Date: 20120727
  Receipt Date: 20120723
  Transmission Date: 20120928
  Serious: Yes (Other)
  Sender: FDA-Public Use
  Company Number: US-TEVA-350026USA

PATIENT
  Sex: Female

DRUGS (1)
  1. METFORMIN HYDROCHLORIDE [Suspect]
     Dates: start: 20120517

REACTIONS (3)
  - INFLUENZA LIKE ILLNESS [None]
  - URTICARIA [None]
  - VISUAL IMPAIRMENT [None]
